FAERS Safety Report 10243086 (Version 1)
Quarter: 2014Q2

REPORT INFORMATION
  Report Type: Spontaneous
  Country: DE (occurrence: None)
  Receive Date: 20140613
  Receipt Date: 20140613
  Transmission Date: 20141212
  Serious: Yes (Hospitalization, Other)
  Sender: FDA-Public Use
  Company Number: AUR-APL-2014-06320

PATIENT
  Age: 56 Year
  Sex: Male

DRUGS (7)
  1. MIRTAZAPINE (MIRTAZAPINE) UNKNOWN, UNKNOWN [Suspect]
     Indication: PRODUCT USED FOR UNKNOWN INDICATION
     Route: 048
     Dates: start: 20120702, end: 20130925
  2. CITALOPRAM (CITALOPRAM) [Concomitant]
  3. RAMIPRIL (RAMIPRIL) [Concomitant]
  4. TORASEMID (TORASEMIDE) [Concomitant]
  5. AMLODIPIN /00972401/ (AMLODIPIN) [Concomitant]
  6. ASS (ACETYLSALICYLIC ACID) [Concomitant]
  7. ATORVASTATIN (ATORVASTATIN) [Concomitant]

REACTIONS (1)
  - Nightmare [None]
